FAERS Safety Report 4463115-8 (Version None)
Quarter: 2004Q3

REPORT INFORMATION
  Report Type: 
  Country: None (occurrence: None)
  Receive Date: 20040928
  Receipt Date: 20040915
  Transmission Date: 20050211
  Serious: Yes (Hospitalization)
  Sender: FDA-Public Use
  Company Number: 2004-120262-NL

PATIENT
  Age: 33 Year
  Sex: Female

DRUGS (1)
  1. NUVARING [Suspect]
     Indication: BLOOD OESTROGEN DECREASED
     Dosage: VAGINAL
     Route: 067
     Dates: start: 20040814, end: 20040913

REACTIONS (5)
  - ABASIA [None]
  - APHASIA [None]
  - HEADACHE [None]
  - HEMIPLEGIA [None]
  - TRANSIENT ISCHAEMIC ATTACK [None]
